FAERS Safety Report 7916887-1 (Version None)
Quarter: 2011Q4

REPORT INFORMATION
  Report Type: 
  Country: None (occurrence: None)
  Receive Date: 20111114
  Receipt Date: 20111102
  Transmission Date: 20120403
  Serious: Yes (Life-Threatening, Hospitalization, Other)
  Sender: FDA-Public Use
  Company Number: LTI2011A00125

PATIENT
  Age: 78 Year
  Sex: Male

DRUGS (5)
  1. ACTOS [Suspect]
     Indication: TYPE 2 DIABETES MELLITUS
     Dosage: 30 MG (30 MG, 1 IN 1 D)
     Route: 048
     Dates: end: 20110404
  2. ACARBOSE [Concomitant]
  3. AMARYL [Concomitant]
  4. QUINAPRIL HCL [Concomitant]
  5. KENZEN 8 MG (CANDESARTAN CILEXETIL) [Concomitant]

REACTIONS (4)
  - HYDRONEPHROSIS [None]
  - RENAL CYST [None]
  - BLADDER CANCER [None]
  - HAEMOGLOBIN DECREASED [None]
